FAERS Safety Report 21423389 (Version 1)
Quarter: 2022Q4

REPORT INFORMATION
  Report Type: Spontaneous
  Country: DE (occurrence: DE)
  Receive Date: 20221007
  Receipt Date: 20221007
  Transmission Date: 20230113
  Serious: Yes (Hospitalization, Other)
  Sender: FDA-Public Use
  Company Number: DE-ADRED-08239-01

PATIENT
  Age: 67 Year
  Sex: Male
  Weight: 70 kg

DRUGS (5)
  1. METHOTREXATE [Suspect]
     Active Substance: METHOTREXATE
     Indication: Product used for unknown indication
     Dosage: 7.5 MG, ONCE A WEEK
     Route: 065
  2. PREDNISOLONE [Concomitant]
     Active Substance: PREDNISOLONE
     Indication: Product used for unknown indication
     Dosage: 1.5 MILLIGRAM DAILY; 1.5 MG, 1-0-0-0
  3. FOLIC ACID [Concomitant]
     Active Substance: FOLIC ACID
     Indication: Product used for unknown indication
     Dosage: 5 MG, ONCE A WEEK
  4. TERBINAFINE [Concomitant]
     Active Substance: TERBINAFINE
     Indication: Product used for unknown indication
     Dosage: 250 MG, ONCE A WEEK
  5. CANDESARTAN [Concomitant]
     Active Substance: CANDESARTAN
     Indication: Product used for unknown indication
     Dosage: 8 MILLIGRAM DAILY; 8 MG, 1-0-0-0

REACTIONS (4)
  - Dizziness [Unknown]
  - Vertigo [Unknown]
  - Transient ischaemic attack [Unknown]
  - Tinnitus [Unknown]
